FAERS Safety Report 7415142-6 (Version None)
Quarter: 2011Q2

REPORT INFORMATION
  Report Type: 
  Country: None (occurrence: None)
  Receive Date: 20110414
  Receipt Date: 20110404
  Transmission Date: 20111010
  Serious: Yes (Other)
  Sender: FDA-Public Use
  Company Number: PHHY2011US25572

PATIENT
  Sex: Male

DRUGS (12)
  1. PLAVIX [Concomitant]
     Dosage: 75 MG, UNK
  2. DIOVAN [Suspect]
     Dosage: 160 MG, QD
  3. METOPROLOL TARTRATE [Concomitant]
     Dosage: 12.5 MG, BID
  4. ENABLEX [Concomitant]
     Dosage: 15 MG, UNK
  5. COLACE [Concomitant]
  6. NASONEX [Concomitant]
     Dosage: 2 PUFFS TWICE DAILY
  7. OXYCODONE [Concomitant]
  8. ASPIRIN [Concomitant]
     Dosage: 325 MG, UNK
  9. LOVAZA [Concomitant]
     Dosage: THREE TIMES A DAY
  10. MULTI-VITAMIN [Concomitant]
  11. ANTARA (MICRONIZED) [Concomitant]
  12. PRAMIPEXOLE DIHYDROCHLORIDE [Concomitant]
     Dosage: 25 MG, UNK

REACTIONS (1)
  - MYOCARDIAL INFARCTION [None]
